FAERS Safety Report 11389759 (Version 1)
Quarter: 2015Q3

REPORT INFORMATION
  Report Type: Report from Study
  Country: BR (occurrence: BR)
  Receive Date: 20150817
  Receipt Date: 20150817
  Transmission Date: 20151125
  Serious: Yes (Death)
  Sender: FDA-Public Use
  Company Number: PHHY2015BR098965

PATIENT
  Sex: Female
  Weight: 55 kg

DRUGS (2)
  1. EXELON [Suspect]
     Active Substance: RIVASTIGMINE TARTRATE
     Indication: DEMENTIA ALZHEIMER^S TYPE
     Dosage: UNK (FORMULATION: 5)
     Route: 065
     Dates: start: 2000
  2. EXELON [Suspect]
     Active Substance: RIVASTIGMINE TARTRATE
     Dosage: 1 CP, QD (FORMULATION: 10)
     Route: 065
     Dates: start: 2002

REACTIONS (3)
  - Gastrointestinal disorder [Fatal]
  - Dysphagia [Fatal]
  - Salivary hypersecretion [Fatal]
